FAERS Safety Report 6265117-8 (Version None)
Quarter: 2009Q3

REPORT INFORMATION
  Report Type: 
  Country: None (occurrence: None)
  Receive Date: 20090713
  Receipt Date: 20090708
  Transmission Date: 20100115
  Serious: Yes (Death)
  Sender: FDA-Public Use
  Company Number: JP-JNJFOC-20081106482

PATIENT
  Age: 5 Decade
  Sex: Male

DRUGS (6)
  1. DUROTEP MT [Suspect]
     Route: 062
  2. DUROTEP MT [Suspect]
     Indication: DRUG USE FOR UNKNOWN INDICATION
     Route: 062
  3. OXYCODONE HYDROCHLORIDE HYDRATE [Suspect]
     Indication: DRUG USE FOR UNKNOWN INDICATION
     Route: 065
  4. MORPHINE HYDROCHLORIDE [Concomitant]
     Route: 054
  5. LOXONIN [Concomitant]
     Route: 065
  6. UNKNOWN DRUG [Concomitant]
     Route: 065

REACTIONS (3)
  - DISEASE PROGRESSION [None]
  - INADEQUATE ANALGESIA [None]
  - NAUSEA [None]
